FAERS Safety Report 8345394-X (Version None)
Quarter: 2012Q2

REPORT INFORMATION
  Report Type: 
  Country: None (occurrence: None)
  Receive Date: 20120508
  Receipt Date: 20120502
  Transmission Date: 20120825
  Serious: Yes (Hospitalization, Other)
  Sender: FDA-Public Use
  Company Number: US-PFIZER INC-2011317487

PATIENT
  Sex: Male
  Weight: 45.351 kg

DRUGS (10)
  1. CHANTIX [Suspect]
     Dosage: UNK
     Dates: start: 20070101, end: 20070101
  2. ATIVAN [Suspect]
     Indication: SLEEP DISORDER
     Dosage: 25 MG AT NIGHT
  3. PERCODAN-DEMI [Concomitant]
     Indication: PAIN
     Dosage: UNK, 4X/DAY
  4. MORPHINE [Concomitant]
     Indication: PAIN
     Dosage: UNK
  5. CHANTIX [Suspect]
     Dosage: UNK
     Dates: start: 20111227
  6. HYDROCHLOROTHIAZIDE [Concomitant]
     Dosage: UNK
  7. CHANTIX [Suspect]
     Indication: SMOKING CESSATION THERAPY
     Dosage: 0.5 MG, 1X/DAY
     Route: 048
     Dates: start: 20070101
  8. CREON [Concomitant]
     Indication: DYSPEPSIA
     Dosage: 24000 UNITS
  9. HYDROCODONE [Concomitant]
     Indication: PAIN
     Dosage: UNK
  10. CHANTIX [Suspect]
     Dosage: 1 MG, 2X/DAY

REACTIONS (14)
  - CONSTIPATION [None]
  - GRAND MAL CONVULSION [None]
  - HIP FRACTURE [None]
  - FEMUR FRACTURE [None]
  - DEPRESSION [None]
  - FEELING ABNORMAL [None]
  - SUICIDAL IDEATION [None]
  - PNEUMONIA [None]
  - ANTISOCIAL BEHAVIOUR [None]
  - ABNORMAL DREAMS [None]
  - INSOMNIA [None]
  - TREMOR [None]
  - MYOCARDIAL INFARCTION [None]
  - HYPERHIDROSIS [None]
